FAERS Safety Report 16851006 (Version 1)
Quarter: 2019Q3

REPORT INFORMATION
  Report Type: Spontaneous
  Country: CA (occurrence: CA)
  Receive Date: 20190925
  Receipt Date: 20190925
  Transmission Date: 20191005
  Serious: Yes (Other)
  Sender: FDA-Public Use
  Company Number: CA-PFIZER INC-2019409706

PATIENT
  Age: 72 Year
  Sex: Male

DRUGS (13)
  1. SALBUTAMOL [Suspect]
     Active Substance: ALBUTEROL
     Dosage: 2 DF, 4X/DAY
     Route: 045
  2. BISACODYL. [Concomitant]
     Active Substance: BISACODYL
     Dosage: UNK
  3. VANCOMYCIN HCL [Suspect]
     Active Substance: VANCOMYCIN HYDROCHLORIDE
     Indication: PROPHYLAXIS
     Dosage: UNK
  4. ATORVASTATIN CALCIUM. [Suspect]
     Active Substance: ATORVASTATIN CALCIUM
     Dosage: 1 DF, 3X/DAY
     Route: 048
  5. RABEPRAZOLE [Suspect]
     Active Substance: RABEPRAZOLE
     Indication: GASTROOESOPHAGEAL REFLUX DISEASE
     Dosage: UNK
  6. BISACODYL. [Concomitant]
     Active Substance: BISACODYL
     Dosage: 1 DF, 1X/DAY
     Route: 048
  7. SALBUTAMOL SULFATE [Concomitant]
     Active Substance: ALBUTEROL SULFATE
     Dosage: 2 DF, 4X/DAY
     Route: 055
  8. CIPROFLOXACIN. [Suspect]
     Active Substance: CIPROFLOXACIN
     Indication: PROPHYLAXIS
     Dosage: UNK
  9. ATORVASTATIN [Concomitant]
     Active Substance: ATORVASTATIN
     Dosage: UNK
  10. GLUCOBAY [Concomitant]
     Active Substance: ACARBOSE
     Dosage: UNK
  11. GLUCOBAY [Concomitant]
     Active Substance: ACARBOSE
     Dosage: 1 DF, 3X/DAY
     Route: 048
  12. ATORVASTATIN CALCIUM. [Suspect]
     Active Substance: ATORVASTATIN CALCIUM
     Dosage: 1 DF, 3X/DAY
     Route: 048
  13. RABEPRAZOLE [Suspect]
     Active Substance: RABEPRAZOLE
     Dosage: 1 DF, 1X/DAY
     Route: 048

REACTIONS (8)
  - Rash papular [Recovered/Resolved]
  - Rash pruritic [Recovered/Resolved]
  - Skin lesion [Recovered/Resolved]
  - Angioedema [Recovered/Resolved]
  - Urticaria [Recovered/Resolved]
  - Rash erythematous [Recovered/Resolved]
  - Miliaria [Recovered/Resolved]
  - Rash [Recovered/Resolved]
